FAERS Safety Report 19112486 (Version 2)
Quarter: 2021Q4

REPORT INFORMATION
  Report Type: Spontaneous
  Country: US (occurrence: None)
  Receive Date: 20210408
  Receipt Date: 20211123
  Transmission Date: 20220303
  Serious: Yes (Hospitalization, Other)
  Sender: FDA-Public Use
  Company Number: 2021A266456

PATIENT
  Age: 17443 Day
  Sex: Male
  Weight: 85.7 kg

DRUGS (46)
  1. NEXIUM [Suspect]
     Active Substance: ESOMEPRAZOLE MAGNESIUM
     Indication: Gastrooesophageal reflux disease
     Route: 048
     Dates: start: 2003, end: 2018
  2. NEXIUM [Suspect]
     Active Substance: ESOMEPRAZOLE MAGNESIUM
     Indication: Gastrooesophageal reflux disease
     Route: 048
     Dates: start: 2001, end: 2018
  3. NEXIUM 24HR [Suspect]
     Active Substance: ESOMEPRAZOLE MAGNESIUM
     Indication: Gastrooesophageal reflux disease
     Route: 048
     Dates: start: 2003, end: 2018
  4. NEXIUM 24HR [Suspect]
     Active Substance: ESOMEPRAZOLE MAGNESIUM
     Indication: Gastrooesophageal reflux disease
     Route: 048
     Dates: start: 2014, end: 2018
  5. PRILOSEC [Suspect]
     Active Substance: OMEPRAZOLE MAGNESIUM
     Indication: Gastrooesophageal reflux disease
     Route: 048
     Dates: start: 1989, end: 2018
  6. PRILOSEC [Suspect]
     Active Substance: OMEPRAZOLE MAGNESIUM
     Indication: Gastrooesophageal reflux disease
     Route: 048
     Dates: start: 2003, end: 2018
  7. PROTONIX [Suspect]
     Active Substance: PANTOPRAZOLE SODIUM
     Indication: Gastrooesophageal reflux disease
     Route: 065
     Dates: start: 2003, end: 2018
  8. PROTONIX [Suspect]
     Active Substance: PANTOPRAZOLE SODIUM
     Indication: Gastrooesophageal reflux disease
     Dosage: GENERIC
     Route: 065
  9. PREVACID [Suspect]
     Active Substance: LANSOPRAZOLE
     Indication: Gastrooesophageal reflux disease
     Route: 065
     Dates: start: 1995, end: 2018
  10. ROSUVASTATIN [Concomitant]
     Active Substance: ROSUVASTATIN
     Indication: Blood cholesterol
  11. AMITRIPTYLINE [Concomitant]
     Active Substance: AMITRIPTYLINE
     Indication: Depression
  12. AZITHROMYCIN [Concomitant]
     Active Substance: AZITHROMYCIN
     Indication: Antibiotic therapy
  13. LISINOPRIL [Concomitant]
     Active Substance: LISINOPRIL
     Indication: Hypertension
  14. CRESTOR [Concomitant]
     Active Substance: ROSUVASTATIN CALCIUM
     Indication: Blood cholesterol
  15. IBOPROFEN [Concomitant]
     Indication: Pain
  16. BENADRYL [Concomitant]
     Active Substance: DIPHENHYDRAMINE HYDROCHLORIDE
  17. ACCURETIC [Concomitant]
     Active Substance: HYDROCHLOROTHIAZIDE\QUINAPRIL HYDROCHLORIDE
  18. CALCIPOTRIENE [Concomitant]
     Active Substance: CALCIPOTRIENE
  19. CLOBETASOL [Concomitant]
     Active Substance: CLOBETASOL
  20. HYDROCORTISONE [Concomitant]
     Active Substance: HYDROCORTISONE
  21. LANTUS [Concomitant]
     Active Substance: INSULIN GLARGINE
  22. BAYER ASPIRIN [Concomitant]
     Active Substance: ASPIRIN
  23. ZANTAC [Concomitant]
     Active Substance: RANITIDINE HYDROCHLORIDE
  24. ENTRESTO [Concomitant]
     Active Substance: SACUBITRIL\VALSARTAN
  25. PLAVIX [Concomitant]
     Active Substance: CLOPIDOGREL BISULFATE
  26. VIOXX [Concomitant]
     Active Substance: ROFECOXIB
  27. AMOXICILLIN [Concomitant]
     Active Substance: AMOXICILLIN
  28. HYDROCHLOROTHIAZIDE [Concomitant]
     Active Substance: HYDROCHLOROTHIAZIDE
  29. NAPROXEN [Concomitant]
     Active Substance: NAPROXEN
  30. TRIAMCINOLONE [Concomitant]
     Active Substance: TRIAMCINOLONE
  31. MOMETASONE FUROATE [Concomitant]
     Active Substance: MOMETASONE FUROATE
  32. CLARITHROMYCIN [Concomitant]
     Active Substance: CLARITHROMYCIN
  33. LANSOPRAZOLE [Concomitant]
     Active Substance: LANSOPRAZOLE
  34. GABAPENTIN [Concomitant]
     Active Substance: GABAPENTIN
  35. FLUCONAZOLE [Concomitant]
     Active Substance: FLUCONAZOLE
  36. SPIRONOLACTONE [Concomitant]
     Active Substance: SPIRONOLACTONE
  37. HUMALOG [Concomitant]
     Active Substance: INSULIN LISPRO
  38. LEVEMIR [Concomitant]
     Active Substance: INSULIN DETEMIR
  39. LORATADINE [Concomitant]
     Active Substance: LORATADINE
  40. TESSALON [Concomitant]
     Active Substance: BENZONATATE
  41. KETOPROFEN [Concomitant]
     Active Substance: KETOPROFEN
  42. JANUVIA [Concomitant]
     Active Substance: SITAGLIPTIN PHOSPHATE
  43. VITAMIN D [Concomitant]
     Active Substance: VITAMIN D NOS
  44. BROMFED [Concomitant]
     Active Substance: BROMPHENIRAMINE MALEATE\DEXTROMETHORPHAN HYDROBROMIDE\PSEUDOEPHEDRINE HYDROCHLORIDE
  45. METOPROLOL [Concomitant]
     Active Substance: METOPROLOL
  46. PIOGLITAZONE [Concomitant]
     Active Substance: PIOGLITAZONE

REACTIONS (5)
  - Acute kidney injury [Not Recovered/Not Resolved]
  - Renal failure [Unknown]
  - Renal tubular necrosis [Unknown]
  - Tubulointerstitial nephritis [Unknown]
  - Gastrooesophageal reflux disease [Not Recovered/Not Resolved]

NARRATIVE: CASE EVENT DATE: 20180403
